FAERS Safety Report 19206029 (Version 1)
Quarter: 2021Q2

REPORT INFORMATION
  Report Type: Spontaneous
  Country: US (occurrence: US)
  Receive Date: 20210503
  Receipt Date: 20210503
  Transmission Date: 20210717
  Serious: No
  Sender: FDA-Public Use
  Company Number: None

PATIENT
  Age: 5 Month
  Weight: 45 kg

DRUGS (2)
  1. ZYRTEC [Concomitant]
     Active Substance: CETIRIZINE HYDROCHLORIDE
  2. ICY HOT MEDICATED NO MESS APPLICATOR [Suspect]
     Active Substance: MENTHOL
     Indication: MUSCULOSKELETAL DISCOMFORT
     Dosage: ?          OTHER STRENGTH:ROLL?ON;OTHER FREQUENCY:AS NEEDED;?
     Route: 061
     Dates: start: 20210502, end: 20210502

REACTIONS (3)
  - Crying [None]
  - Pain [None]
  - Rash erythematous [None]

NARRATIVE: CASE EVENT DATE: 20210502
